FAERS Safety Report 15723043 (Version 3)
Quarter: 2019Q1

REPORT INFORMATION
  Report Type: Spontaneous
  Country: JP (occurrence: JP)
  Receive Date: 20181214
  Receipt Date: 20190319
  Transmission Date: 20190417
  Serious: Yes (Hospitalization, Other)
  Sender: FDA-Public Use
  Company Number: JP-SA-2018SA342154

PATIENT
  Age: 37 Year
  Sex: Female
  Weight: 45 kg

DRUGS (6)
  1. ISONIAZID. [Suspect]
     Active Substance: ISONIAZID
     Dosage: 300 MG, QD
  2. RIFADIN [Suspect]
     Active Substance: RIFAMPIN
     Indication: TUBERCULOUS PLEURISY
     Dosage: 450 MG, QD
  3. RIFADIN [Suspect]
     Active Substance: RIFAMPIN
     Dosage: 450 MG, QD
  4. PYRAZINAMIDE. [Suspect]
     Active Substance: PYRAZINAMIDE
     Indication: TUBERCULOUS PLEURISY
     Dosage: 1 G, QD
     Route: 048
  5. ETHAMBUTOL [Suspect]
     Active Substance: ETHAMBUTOL HYDROCHLORIDE
     Indication: TUBERCULOUS PLEURISY
  6. ISONIAZID. [Suspect]
     Active Substance: ISONIAZID
     Indication: TUBERCULOUS PLEURISY
     Dosage: 300 MG, QD

REACTIONS (8)
  - Paradoxical drug reaction [Recovered/Resolved]
  - Chest discomfort [Recovered/Resolved]
  - Menstruation irregular [Unknown]
  - Pyrexia [Recovered/Resolved]
  - Peritoneal tuberculosis [Recovered/Resolved]
  - Platelet count decreased [Unknown]
  - Pulmonary tuberculoma [Recovered/Resolved]
  - Hepatic enzyme increased [Unknown]
